FAERS Safety Report 8191137-2 (Version None)
Quarter: 2012Q1

REPORT INFORMATION
  Report Type: 
  Country: None (occurrence: None)
  Receive Date: 20120307
  Receipt Date: 20120301
  Transmission Date: 20120608
  Serious: Yes (Other)
  Sender: FDA-Public Use
  Company Number: JP-GLAXOSMITHKLINE-B0785911A

PATIENT
  Age: 10 Year
  Sex: Female

DRUGS (6)
  1. FLUTICASONE PROPIONATE/SALMETEROL [Suspect]
     Indication: ASTHMA
     Route: 055
     Dates: start: 20110401, end: 20110701
  2. ZYRTEC [Concomitant]
     Route: 048
  3. SINGULAIR [Concomitant]
     Route: 048
  4. FLUTICASONE PROPIONATE/SALMETEROL [Suspect]
     Route: 055
     Dates: start: 20111001
  5. FLUTICASONE PROPIONATE [Suspect]
     Indication: ASTHMA
     Route: 055
     Dates: start: 20110701, end: 20111001
  6. MEPTIN [Concomitant]
     Route: 055

REACTIONS (2)
  - ALOPECIA [None]
  - ASTHMA [None]
